FAERS Safety Report 10653747 (Version 1)
Quarter: 2014Q4

REPORT INFORMATION
  Report Type: Not Available
  Country: US (occurrence: US)
  Receive Date: 20141216
  Receipt Date: 20141216
  Transmission Date: 20150529
  Serious: No
  Sender: FDA-Public Use
  Company Number: US-LUPIN PHARMACEUTICALS INC.-E2B_00001482

PATIENT
  Sex: Female

DRUGS (1)
  1. LOVASTATIN TABLETS USP 20 MG [Suspect]
     Active Substance: LOVASTATIN
     Indication: BLOOD CHOLESTEROL INCREASED
     Dates: start: 20130915

REACTIONS (1)
  - Abdominal pain upper [Not Recovered/Not Resolved]
